FAERS Safety Report 4791362-4 (Version None)
Quarter: 2005Q4

REPORT INFORMATION
  Report Type: 
  Country: None (occurrence: None)
  Receive Date: 20051007
  Receipt Date: 20051003
  Transmission Date: 20060501
  Serious: Yes (Other)
  Sender: FDA-Public Use
  Company Number: PHEH2005US11049

PATIENT

DRUGS (1)
  1. ZELNORM [Suspect]
     Dosage: UNK

REACTIONS (1)
  - CATARACT [None]
